FAERS Safety Report 18196816 (Version 1)
Quarter: 2020Q3

REPORT INFORMATION
  Report Type: Spontaneous
  Country: DE (occurrence: DE)
  Receive Date: 20200826
  Receipt Date: 20200826
  Transmission Date: 20201103
  Serious: Yes (Hospitalization, Other)
  Sender: FDA-Public Use
  Company Number: DE-ABBVIE-20K-062-3537184-00

PATIENT
  Age: 61 Year

DRUGS (12)
  1. KALETRA [Suspect]
     Active Substance: LOPINAVIR\RITONAVIR
     Route: 048
     Dates: start: 200605, end: 201602
  2. INVIRASE [Suspect]
     Active Substance: SAQUINAVIR MESYLATE
     Indication: HIV INFECTION
     Route: 065
     Dates: start: 199701
  3. KALETRA [Suspect]
     Active Substance: LOPINAVIR\RITONAVIR
     Indication: HIV INFECTION
     Route: 048
     Dates: start: 200208, end: 200605
  4. ABACAVIR. [Suspect]
     Active Substance: ABACAVIR
     Route: 065
     Dates: start: 199711
  5. ZERIT [Suspect]
     Active Substance: STAVUDINE
     Route: 065
     Dates: start: 200208, end: 200605
  6. KIVEXA [Suspect]
     Active Substance: ABACAVIR SULFATE\LAMIVUDINE
     Indication: HIV INFECTION
     Route: 065
     Dates: start: 200605, end: 201602
  7. VIRACEPT [Suspect]
     Active Substance: NELFINAVIR MESYLATE
     Indication: HIV INFECTION
     Route: 065
     Dates: start: 199711
  8. RETROVIR [Suspect]
     Active Substance: ZIDOVUDINE
     Indication: HIV INFECTION
     Route: 065
     Dates: start: 199701
  9. TRIUMEQ [Suspect]
     Active Substance: ABACAVIR SULFATE\DOLUTEGRAVIR SODIUM\LAMIVUDINE
     Indication: HIV INFECTION
     Route: 065
     Dates: start: 201602
  10. EPIVIR [Suspect]
     Active Substance: LAMIVUDINE
     Indication: HIV INFECTION
     Route: 065
     Dates: start: 199701
  11. ABACAVIR. [Suspect]
     Active Substance: ABACAVIR
     Indication: HIV INFECTION
     Route: 065
     Dates: start: 200208, end: 200605
  12. ZERIT [Suspect]
     Active Substance: STAVUDINE
     Indication: HIV INFECTION
     Route: 065
     Dates: start: 199711

REACTIONS (9)
  - Gamma-glutamyltransferase increased [Unknown]
  - Hypertension [Unknown]
  - Myocardial infarction [Unknown]
  - Treatment noncompliance [Unknown]
  - Blood cholesterol increased [Unknown]
  - Angina pectoris [Unknown]
  - Hemianopia [Unknown]
  - Intracranial aneurysm [Unknown]
  - Hepatic steatosis [Unknown]

NARRATIVE: CASE EVENT DATE: 201811
